FAERS Safety Report 9206658 (Version 1)
Quarter: 2013Q2

REPORT INFORMATION
  Report Type: Spontaneous
  Country: US (occurrence: US)
  Receive Date: 20130403
  Receipt Date: 20130403
  Transmission Date: 20140414
  Serious: Yes (Other)
  Sender: FDA-Public Use
  Company Number: US-BAYER-2013-040509

PATIENT
  Sex: Female

DRUGS (2)
  1. YAZ [Suspect]
     Dosage: UNK
     Dates: start: 2009, end: 2010
  2. GIANVI [Suspect]
     Dosage: UNK
     Dates: start: 2010, end: 2011

REACTIONS (1)
  - Cholecystectomy [None]
